FAERS Safety Report 8348219-1 (Version None)
Quarter: 2012Q2

REPORT INFORMATION
  Report Type: 
  Country: None (occurrence: None)
  Receive Date: 20120507
  Receipt Date: 20120423
  Transmission Date: 20120825
  Serious: Yes (Hospitalization, Other)
  Sender: FDA-Public Use
  Company Number: 2012MA005428

PATIENT
  Age: 17 Year
  Sex: Male

DRUGS (1)
  1. METFORMIN HYDROCHLORIDE [Suspect]
     Dosage: 80 GM;1X;PO
     Route: 048

REACTIONS (5)
  - CONFUSIONAL STATE [None]
  - HAEMODIALYSIS [None]
  - SUICIDE ATTEMPT [None]
  - LACTIC ACIDOSIS [None]
  - INCORRECT DOSE ADMINISTERED [None]
